FAERS Safety Report 15300920 (Version 1)
Quarter: 2018Q3

REPORT INFORMATION
  Report Type: Report from Study
  Country: None (occurrence: GB)
  Receive Date: 20180821
  Receipt Date: 20180821
  Transmission Date: 20181010
  Serious: Yes (Hospitalization, Other)
  Sender: FDA-Public Use
  Company Number: GB-ABBVIE-18K-167-2452339-00

PATIENT
  Age: 51 Year
  Sex: Female

DRUGS (1)
  1. HUMIRA [Suspect]
     Active Substance: ADALIMUMAB
     Indication: RHEUMATOID ARTHRITIS
     Route: 058
     Dates: end: 20060525

REACTIONS (5)
  - Post transplant lymphoproliferative disorder [Unknown]
  - Lymphadenopathy [Unknown]
  - Diarrhoea [Unknown]
  - Pyrexia [Unknown]
  - Haematuria [Unknown]

NARRATIVE: CASE EVENT DATE: 20170125
